APPROVED DRUG PRODUCT: CILOXAN
Active Ingredient: CIPROFLOXACIN HYDROCHLORIDE
Strength: EQ 0.3% BASE
Dosage Form/Route: OINTMENT;OPHTHALMIC
Application: N020369 | Product #001
Applicant: SANDOZ INC
Approved: Mar 30, 1998 | RLD: Yes | RS: Yes | Type: RX